FAERS Safety Report 5937268-6 (Version None)
Quarter: 2008Q4

REPORT INFORMATION
  Report Type: 
  Country: None (occurrence: None)
  Receive Date: 20081031
  Receipt Date: 20081023
  Transmission Date: 20090506
  Serious: Yes (Hospitalization)
  Sender: FDA-Public Use
  Company Number: FR-JNJFOC-20081005448

PATIENT
  Sex: Male

DRUGS (3)
  1. RISPERDAL [Suspect]
     Route: 048
  2. RISPERDAL [Suspect]
     Indication: DRUG USE FOR UNKNOWN INDICATION
     Route: 048
  3. MAGNE B6 [Concomitant]
     Route: 065

REACTIONS (4)
  - PALPITATIONS [None]
  - SUICIDE ATTEMPT [None]
  - TACHYCARDIA [None]
  - VERTIGO [None]
